FAERS Safety Report 11744573 (Version 3)
Quarter: 2016Q1

REPORT INFORMATION
  Report Type: Spontaneous
  Country: US (occurrence: US)
  Receive Date: 20151116
  Receipt Date: 20160115
  Transmission Date: 20160525
  Serious: Yes (Other)
  Sender: FDA-Public Use
  Company Number: US-PFIZER INC-2015382746

PATIENT
  Age: 55 Year
  Sex: Male
  Weight: 91 kg

DRUGS (3)
  1. INLYTA [Suspect]
     Active Substance: AXITINIB
     Indication: RENAL CANCER STAGE IV
     Dosage: 5 MG 2X/DAY FOR 4 WEEKS EVERY 42 DAYS
     Route: 048
     Dates: start: 20150925
  2. INLYTA [Suspect]
     Active Substance: AXITINIB
     Dosage: UNK
  3. ZOMETA [Suspect]
     Active Substance: ZOLEDRONIC ACID

REACTIONS (7)
  - Disease progression [Unknown]
  - Stomatitis [Unknown]
  - Osteonecrosis of jaw [Recovering/Resolving]
  - Dyspnoea [Unknown]
  - Blood creatinine increased [Unknown]
  - Renal cancer stage IV [Unknown]
  - Dysphonia [Unknown]

NARRATIVE: CASE EVENT DATE: 2015
